FAERS Safety Report 12940225 (Version 2)
Quarter: 2017Q1

REPORT INFORMATION
  Report Type: Spontaneous
  Country: US (occurrence: US)
  Receive Date: 20161115
  Receipt Date: 20170322
  Transmission Date: 20170428
  Serious: Yes (Other)
  Sender: FDA-Public Use
  Company Number: US-JNJFOC-20161102453

PATIENT
  Sex: Male

DRUGS (8)
  1. RISPERDAL [Suspect]
     Active Substance: RISPERIDONE
     Indication: SCHIZOPHRENIA
     Route: 048
     Dates: start: 2009, end: 20110105
  2. HALDOL [Suspect]
     Active Substance: HALOPERIDOL
     Indication: PRODUCT USED FOR UNKNOWN INDICATION
     Route: 065
     Dates: end: 20101228
  3. RISPERDAL CONSTA [Suspect]
     Active Substance: RISPERIDONE
     Indication: PRODUCT USED FOR UNKNOWN INDICATION
     Route: 030
  4. RISPERDAL M-TAB [Suspect]
     Active Substance: RISPERIDONE
     Indication: PSYCHOTIC DISORDER
     Route: 048
  5. RISPERDAL [Suspect]
     Active Substance: RISPERIDONE
     Indication: OPPOSITIONAL DEFIANT DISORDER
     Route: 048
     Dates: start: 2009, end: 20110105
  6. RISPERDAL M-TAB [Suspect]
     Active Substance: RISPERIDONE
     Indication: ANXIETY
     Route: 048
  7. RISPERIDONE. [Suspect]
     Active Substance: RISPERIDONE
     Indication: PRODUCT USED FOR UNKNOWN INDICATION
     Route: 048
  8. RISPERDAL M-TAB [Suspect]
     Active Substance: RISPERIDONE
     Indication: AGITATION
     Route: 048

REACTIONS (4)
  - Obesity [Unknown]
  - Gynaecomastia [Unknown]
  - Drug hypersensitivity [Unknown]
  - Extrapyramidal disorder [Unknown]

NARRATIVE: CASE EVENT DATE: 2010
